FAERS Safety Report 5914388-3 (Version None)
Quarter: 2008Q4

REPORT INFORMATION
  Report Type: 
  Country: None (occurrence: None)
  Receive Date: 20081007
  Receipt Date: 20080929
  Transmission Date: 20090506
  Serious: Yes (Hospitalization)
  Sender: FDA-Public Use
  Company Number: 034724

PATIENT
  Age: 84 Year
  Sex: Male
  Weight: 77.1 kg

DRUGS (2)
  1. WARFARIN SODIUM [Suspect]
     Indication: CARDIAC PACEMAKER INSERTION
     Dosage: 5 MG, QD, ORAL
     Route: 048
     Dates: start: 20050101
  2. WARFARIN SODIUM [Suspect]
     Indication: STENT PLACEMENT
     Dosage: 5 MG, QD, ORAL
     Route: 048
     Dates: start: 20050101

REACTIONS (4)
  - ASTHENIA [None]
  - BLOOD PRESSURE INCREASED [None]
  - DIZZINESS [None]
  - HEART RATE DECREASED [None]
